FAERS Safety Report 18484638 (Version 1)
Quarter: 2020Q4

REPORT INFORMATION
  Report Type: Spontaneous
  Country: US (occurrence: US)
  Receive Date: 20201109
  Receipt Date: 20201109
  Transmission Date: 20210114
  Serious: Yes (Hospitalization)
  Sender: FDA-Public Use
  Company Number: None

PATIENT
  Sex: Female

DRUGS (7)
  1. ALBUTEROL NEB [Concomitant]
     Active Substance: ALBUTEROL
  2. CEPHALEXIN. [Concomitant]
     Active Substance: CEPHALEXIN
  3. XOLAIR [Suspect]
     Active Substance: OMALIZUMAB
     Indication: ASTHMA
     Route: 058
  4. ALBUTEROL AER [Concomitant]
     Active Substance: ALBUTEROL
  5. CETIRIZINE [Concomitant]
     Active Substance: CETIRIZINE HYDROCHLORIDE
  6. AZITHROMYCIN ANHYDROUS. [Concomitant]
     Active Substance: AZITHROMYCIN ANHYDROUS
  7. BUPROPION. [Concomitant]
     Active Substance: BUPROPION

REACTIONS (1)
  - Pneumonia [None]
